FAERS Safety Report 7551064-8 (Version None)
Quarter: 2011Q2

REPORT INFORMATION
  Report Type: 
  Country: None (occurrence: None)
  Receive Date: 20110616
  Receipt Date: 20110614
  Transmission Date: 20111010
  Serious: Yes (Hospitalization)
  Sender: FDA-Public Use
  Company Number: SE-SANOFI-AVENTIS-2011SA036408

PATIENT
  Age: 58 Year
  Sex: Male
  Weight: 68.7 kg

DRUGS (13)
  1. PREDNISOLONE [Suspect]
     Indication: PROSTATE CANCER
     Route: 048
  2. SODIUM PICOSULFATE [Concomitant]
  3. SALURES [Concomitant]
  4. OMEPRAZOLE [Concomitant]
  5. FILGRASTIM [Concomitant]
  6. CABAZITAXEL [Suspect]
     Route: 042
     Dates: start: 20110601, end: 20110601
  7. CABAZITAXEL [Suspect]
     Indication: PROSTATE CANCER
     Route: 042
     Dates: start: 20110302, end: 20110302
  8. PRIMPERAN TAB [Concomitant]
  9. KETOGAN [Concomitant]
  10. PAMOL [Concomitant]
  11. ESOMEPRAZOLE MAGNESIUM [Concomitant]
     Route: 048
  12. ONDANSETRON [Concomitant]
  13. PROPAVAN [Concomitant]

REACTIONS (1)
  - GASTRIC ULCER [None]
